FAERS Safety Report 5785337-6 (Version None)
Quarter: 2008Q2

REPORT INFORMATION
  Report Type: 
  Country: None (occurrence: None)
  Receive Date: 20080624
  Receipt Date: 20080618
  Transmission Date: 20081010
  Serious: Yes (Death)
  Sender: FDA-Public Use
  Company Number: FR-MERCK-0806FRA00051

PATIENT
  Age: 49 Year
  Sex: Female

DRUGS (2)
  1. CANCIDAS [Suspect]
     Indication: ENDOCARDITIS
     Route: 042
  2. VORICONAZOLE [Concomitant]
     Indication: ENDOCARDITIS
     Route: 042

REACTIONS (2)
  - ENDOCARDITIS [None]
  - TREATMENT FAILURE [None]
